FAERS Safety Report 6944917-2 (Version None)
Quarter: 2010Q3

REPORT INFORMATION
  Report Type: 
  Country: None (occurrence: None)
  Receive Date: 20100824
  Receipt Date: 20100812
  Transmission Date: 20110219
  Serious: Yes (Hospitalization)
  Sender: FDA-Public Use
  Company Number: DSA_43749_2010

PATIENT
  Age: 71 Year
  Sex: Female

DRUGS (2)
  1. DILTIAZEM [Suspect]
     Indication: ARRHYTHMIA
     Dosage: (DF ORAL)
     Route: 048
     Dates: start: 20090506, end: 20090509
  2. DILTIAZEM [Suspect]
     Indication: ARRHYTHMIA
     Dosage: (DF ORAL)
     Route: 048
     Dates: start: 20090512, end: 20090516

REACTIONS (1)
  - ACUTE GENERALISED EXANTHEMATOUS PUSTULOSIS [None]
